FAERS Safety Report 4731877-8 (Version None)
Quarter: 2005Q3

REPORT INFORMATION
  Report Type: 
  Country: None (occurrence: None)
  Receive Date: 20050802
  Receipt Date: 20050802
  Transmission Date: 20060218
  Serious: Yes (Hospitalization)
  Sender: FDA-Public Use
  Company Number: None

PATIENT
  Sex: Male
  Weight: 65 kg

DRUGS (2)
  1. LAPATINIB [Suspect]
     Indication: NEOPLASM RECURRENCE
     Dosage: 1500 MG P.O.DAILY
     Route: 048
  2. LAPATINIB [Suspect]
     Indication: SQUAMOUS CELL CARCINOMA
     Dosage: 1500 MG P.O.DAILY
     Route: 048

REACTIONS (3)
  - ATRIAL FIBRILLATION [None]
  - DIZZINESS [None]
  - DYSPNOEA [None]
